FAERS Safety Report 6194380-7 (Version None)
Quarter: 2009Q2

REPORT INFORMATION
  Report Type: 
  Country: None (occurrence: None)
  Receive Date: 20090519
  Receipt Date: 20090512
  Transmission Date: 20091009
  Serious: Yes (Other)
  Sender: FDA-Public Use
  Company Number: US-BAYER-200917205NA

PATIENT
  Age: 33 Year
  Sex: Female
  Weight: 79 kg

DRUGS (2)
  1. MIRENA [Suspect]
     Indication: CONTRACEPTION
     Dosage: CONTINUOUS
     Route: 015
     Dates: start: 20090203, end: 20090203
  2. VITAMIN TAB [Concomitant]
     Indication: PREGNANCY

REACTIONS (5)
  - ABDOMINAL TENDERNESS [None]
  - DIARRHOEA [None]
  - PELVIC DISCOMFORT [None]
  - PYREXIA [None]
  - UTERINE RUPTURE [None]
